FAERS Safety Report 6520626-9 (Version None)
Quarter: 2009Q4

REPORT INFORMATION
  Report Type: 
  Country: None (occurrence: None)
  Receive Date: 20091229
  Receipt Date: 20091221
  Transmission Date: 20100525
  Serious: Yes (Hospitalization, Other)
  Sender: FDA-Public Use
  Company Number: FR-BRISTOL-MYERS SQUIBB COMPANY-14905327

PATIENT
  Age: 80 Year
  Sex: Female

DRUGS (2)
  1. COUMADIN [Suspect]
     Indication: PHLEBITIS
     Dosage: TAKEN FOR SEVERAL MONTHS
     Route: 048
  2. ASPIRIN [Suspect]
     Indication: ARTHRALGIA
     Route: 048
     Dates: end: 20090924

REACTIONS (4)
  - GASTRIC ULCER [None]
  - GASTROINTESTINAL HAEMORRHAGE [None]
  - MELAENA [None]
  - RENAL FAILURE [None]
